FAERS Safety Report 7212361-9 (Version None)
Quarter: 2011Q1

REPORT INFORMATION
  Report Type: 
  Country: None (occurrence: None)
  Receive Date: 20110106
  Receipt Date: 20101231
  Transmission Date: 20110831
  Serious: Yes (Other)
  Sender: FDA-Public Use
  Company Number: SI-BRISTOL-MYERS SQUIBB COMPANY-15464233

PATIENT
  Age: 77 Year
  Sex: Male

DRUGS (3)
  1. CISPLATIN [Suspect]
     Indication: BLADDER CANCER
     Dosage: DAY 1 EVERY THREE WEEKS;CUMULATIVE DOSE 300MG/M2
     Dates: start: 20090501, end: 20090801
  2. GEMCITABINE [Suspect]
     Indication: BLADDER CANCER
     Dosage: DAY 1 EVERY THREE WEEKS;CUMULATIVE DOSE 4000 MG/M2
     Dates: start: 20090501, end: 20090801
  3. HEPARIN [Concomitant]

REACTIONS (3)
  - EXTREMITY NECROSIS [None]
  - INFECTION [None]
  - PERIPHERAL ARTERIAL OCCLUSIVE DISEASE [None]
